FAERS Safety Report 9520664 (Version 2)
Quarter: 2013Q4

REPORT INFORMATION
  Report Type: Spontaneous
  Country: DE (occurrence: DE)
  Receive Date: 20130913
  Receipt Date: 20131031
  Transmission Date: 20140711
  Serious: Yes (Hospitalization)
  Sender: FDA-Public Use
  Company Number: DE-MERCK-1309DEU003880

PATIENT
  Age: 49 Year
  Sex: Male
  Weight: 75 kg

DRUGS (3)
  1. VICTRELIS [Suspect]
     Indication: CHRONIC HEPATITIS C
     Dosage: TOTAL DAILY DOSE 1200 MG
     Route: 048
     Dates: start: 201304
  2. PEGINTRON [Suspect]
     Indication: CHRONIC HEPATITIS C
     Dosage: DOSE REPORTED AS 180 MCG
     Dates: start: 201304
  3. REBETOL [Suspect]
     Indication: CHRONIC HEPATITIS C
     Dosage: DOSE REPORTED AS 800 MG
     Route: 048
     Dates: start: 201304

REACTIONS (4)
  - Syncope [Recovered/Resolved]
  - Atrioventricular block second degree [Recovered/Resolved]
  - Hyperchromic anaemia [Unknown]
  - Anaemia macrocytic [Unknown]
